FAERS Safety Report 24736985 (Version 5)
Quarter: 2025Q2

REPORT INFORMATION
  Report Type: Report from Study
  Country: US (occurrence: US)
  Receive Date: 20241216
  Receipt Date: 20250605
  Transmission Date: 20250717
  Serious: Yes (Hospitalization, Other)
  Sender: SUNOVION
  Company Number: US-SMPA-2024SPA006143

PATIENT

DRUGS (4)
  1. ORGOVYX [Suspect]
     Active Substance: RELUGOLIX
     Indication: Prostate cancer
     Dosage: 120 MG, QD
     Route: 048
     Dates: start: 20241022
  2. PREDNISONE [Concomitant]
     Active Substance: PREDNISONE
     Dosage: 5 MG, QD
     Route: 065
  3. FUROSEMIDE [Concomitant]
     Active Substance: FUROSEMIDE
     Dosage: 40 MG, QD
     Route: 065
  4. LOSARTAN [Concomitant]
     Active Substance: LOSARTAN
     Dosage: 29 MG, QD
     Route: 065

REACTIONS (8)
  - Arteriosclerosis [Unknown]
  - Joint swelling [Unknown]
  - Chronic kidney disease [Unknown]
  - Stent removal [Unknown]
  - Prostatic specific antigen increased [Unknown]
  - Dyspnoea exertional [Unknown]
  - Arthritis [Unknown]
  - Incorrect dose administered [Unknown]
